FAERS Safety Report 15928554 (Version 2)
Quarter: 2019Q1

REPORT INFORMATION
  Report Type: Spontaneous
  Country: US (occurrence: US)
  Receive Date: 20190206
  Receipt Date: 20190208
  Transmission Date: 20190417
  Serious: Yes (Other)
  Sender: FDA-Public Use
  Company Number: US-PFIZER INC-2019044612

PATIENT
  Age: 67 Year
  Sex: Female

DRUGS (6)
  1. LIDOCAINE HCL [Suspect]
     Active Substance: LIDOCAINE HYDROCHLORIDE
     Dosage: UNK
     Route: 040
  2. EPINEPHRINE. [Concomitant]
     Active Substance: EPINEPHRINE
  3. VASOPRESSIN. [Concomitant]
     Active Substance: VASOPRESSIN
  4. LIDOCAINE HCL [Suspect]
     Active Substance: LIDOCAINE HYDROCHLORIDE
     Indication: VENTRICULAR FIBRILLATION
     Dosage: 1 MG/MIN
     Route: 042
  5. MILRINONE [Concomitant]
     Active Substance: MILRINONE
  6. AMIODARONE HCL [Suspect]
     Active Substance: AMIODARONE HYDROCHLORIDE
     Indication: VENTRICULAR FIBRILLATION
     Dosage: 11 G, UNK
     Route: 042

REACTIONS (2)
  - Ventricular tachycardia [Unknown]
  - Drug ineffective [Unknown]
